FAERS Safety Report 9621255 (Version 1)
Quarter: 2013Q4

REPORT INFORMATION
  Report Type: Report from Study
  Country: CA (occurrence: CA)
  Receive Date: 20131015
  Receipt Date: 20131015
  Transmission Date: 20140711
  Serious: Yes (Hospitalization)
  Sender: FDA-Public Use
  Company Number: CA-JNJFOC-20131006765

PATIENT
  Age: 56 Year
  Sex: Female
  Weight: 74 kg

DRUGS (3)
  1. REMICADE [Suspect]
     Indication: HIDRADENITIS
     Dosage: 25 INFUSIONS TILL DATE
     Route: 042
  2. REMICADE [Suspect]
     Indication: HIDRADENITIS
     Route: 042
     Dates: start: 201309
  3. METHOTREXATE [Concomitant]
     Route: 048

REACTIONS (3)
  - Platelet count decreased [Unknown]
  - Blood potassium decreased [Unknown]
  - Off label use [Unknown]
